FAERS Safety Report 8032445-5 (Version None)
Quarter: 2012Q1

REPORT INFORMATION
  Report Type: 
  Country: None (occurrence: None)
  Receive Date: 20120110
  Receipt Date: 20120104
  Transmission Date: 20120608
  Serious: No
  Sender: FDA-Public Use
  Company Number: US-JNJFOC-20120101552

PATIENT
  Sex: Female
  Weight: 62.14 kg

DRUGS (3)
  1. FENTANYL-100 [Suspect]
     Indication: SPINAL COLUMN STENOSIS
     Dosage: NDC#0781-7240-55
     Route: 062
  2. AMIODARONE HCL [Concomitant]
     Indication: CARDIAC DISORDER
     Route: 048
  3. CRESTOR [Concomitant]
     Indication: BLOOD CHOLESTEROL
     Route: 048

REACTIONS (4)
  - APHONIA [None]
  - HYPERSENSITIVITY [None]
  - PRODUCT QUALITY ISSUE [None]
  - POOR QUALITY DRUG ADMINISTERED [None]
